FAERS Safety Report 9258046 (Version 1)
Quarter: 2013Q1

REPORT INFORMATION
  Report Type: Spontaneous
  Country: US (occurrence: None)
  Receive Date: 20121212
  Receipt Date: 20121212
  Transmission Date: 20140127
  Serious: No
  Sender: FDA-Public Use
  Company Number: 1207USA008632

PATIENT
  Age: 57 Year
  Sex: Male
  Weight: 122.4 kg

DRUGS (11)
  1. VICTRELIS [Suspect]
     Route: 048
  2. REBETOL [Suspect]
  3. PEGASYS [Suspect]
  4. METFORMIN (METFORMIN) [Concomitant]
  5. MAXI MULTI (ALOE VERA, AMINO ACIDS (UNSPECIFIED) MINERALS (UNSPECIFIED), VITAMINS (UNSPECIFIED)) TABLET [Concomitant]
  6. OMEGA-3 MARINE TRIGLYCERIDES (OMEGA-3 MARINE TRIGLYCERIDES) [Concomitant]
  7. VITAMIN B COMPLEX (VITAMIN B COMPLEX) [Concomitant]
  8. PREVACID (LANSOPRAZOLE) [Concomitant]
  9. FIBER (UNSPECIFIED) (FIBER (UNSPECIFIED)) [Concomitant]
  10. VITAMIN D (UNSPECIFIED) (VITAMIN D (UNSPECIFIED)) [Concomitant]
  11. TURMERIC (TUMERIC) [Concomitant]

REACTIONS (5)
  - Appetite disorder [None]
  - Weight decreased [None]
  - Influenza like illness [None]
  - Dysgeusia [None]
  - Diarrhoea [None]
